FAERS Safety Report 17410123 (Version 1)
Quarter: 2020Q1

REPORT INFORMATION
  Report Type: Spontaneous
  Country: US (occurrence: US)
  Receive Date: 20200212
  Receipt Date: 20200212
  Transmission Date: 20200409
  Serious: No
  Sender: FDA-Public Use
  Company Number: US-BAUSCH-BL-2020-002797

PATIENT
  Age: 71 Year
  Sex: Female

DRUGS (2)
  1. ALTRENO [Suspect]
     Active Substance: TRETINOIN
     Indication: ACNE
     Dosage: IN THE EVENING FOR APPROXIMATELY TWO WEEKS
     Route: 061
     Dates: start: 202001, end: 202001
  2. ALTRENO [Suspect]
     Active Substance: TRETINOIN
     Indication: SKIN WRINKLING

REACTIONS (3)
  - Wrong technique in product usage process [Unknown]
  - Erythema [Unknown]
  - Macule [Unknown]

NARRATIVE: CASE EVENT DATE: 202001
